FAERS Safety Report 12894502 (Version 2)
Quarter: 2016Q4

REPORT INFORMATION
  Report Type: Report from Study
  Country: None (occurrence: BR)
  Receive Date: 20161028
  Receipt Date: 20161108
  Transmission Date: 20170207
  Serious: Yes (Hospitalization, Other)
  Sender: FDA-Public Use
  Company Number: BR-ABBVIE-16P-020-1766526-00

PATIENT
  Age: 48 Year
  Sex: Female
  Weight: 61 kg

DRUGS (4)
  1. SYNTHROID [Suspect]
     Active Substance: LEVOTHYROXINE SODIUM
     Dosage: DAILY DOSE:50 MCG;IN THE MORNING, AFTER FASTING
     Route: 048
  2. ALLEGRA-D [Concomitant]
     Active Substance: FEXOFENADINE\PSEUDOEPHEDRINE
     Indication: RHINITIS ALLERGIC
     Dosage: SHE TAKE 1TAB/DAY WHEN CRISIS;IF SHE IS TOO BAD,1TAB EVERY 12 HRS
  3. SYNTHROID [Suspect]
     Active Substance: LEVOTHYROXINE SODIUM
     Indication: HYPOTHYROIDISM
     Route: 048
     Dates: start: 2014
  4. LYRICA [Concomitant]
     Active Substance: PREGABALIN
     Indication: BACK DISORDER
     Dates: start: 201509, end: 201602

REACTIONS (13)
  - Cauda equina syndrome [Unknown]
  - Bladder disorder [Unknown]
  - Pain [Unknown]
  - Hernia perforation [Unknown]
  - Pulmonary embolism [Unknown]
  - Sepsis [Recovered/Resolved]
  - Liver disorder [Unknown]
  - Fatigue [Unknown]
  - Somnolence [Unknown]
  - Asthenia [Unknown]
  - Renal impairment [Unknown]
  - Blood thyroid stimulating hormone abnormal [Recovering/Resolving]
  - Spinal operation [Recovered/Resolved]

NARRATIVE: CASE EVENT DATE: 201512
